FAERS Safety Report 9711695 (Version 3)
Quarter: 2014Q1

REPORT INFORMATION
  Report Type: Spontaneous
  Country: CN (occurrence: CN)
  Receive Date: 20131126
  Receipt Date: 20140107
  Transmission Date: 20141002
  Serious: Yes (Life-Threatening, Hospitalization)
  Sender: FDA-Public Use
  Company Number: CN-PFIZER INC-2013336398

PATIENT
  Age: 60 Year
  Sex: Male

DRUGS (4)
  1. AMIODARONE HCL [Suspect]
     Indication: SUPRAVENTRICULAR TACHYCARDIA
     Dosage: 600 MG, DAILY (3 TIMES/D)
     Route: 048
     Dates: start: 20100925, end: 20101113
  2. AMIODARONE [Suspect]
     Indication: SUPRAVENTRICULAR TACHYCARDIA
     Dosage: 150 MG, 2X/DAY
     Route: 042
     Dates: start: 20100923, end: 20100925
  3. DIHYDRALAZINE SULFATE [Concomitant]
     Indication: HYPERTENSION
     Dosage: UNK
  4. INSULIN GLARGINE [Concomitant]
     Indication: BLOOD GLUCOSE ABNORMAL
     Dosage: UNK

REACTIONS (2)
  - Interstitial lung disease [Recovering/Resolving]
  - Respiratory failure [Recovering/Resolving]
